FAERS Safety Report 16291910 (Version 1)
Quarter: 2019Q2

REPORT INFORMATION
  Report Type: Spontaneous
  Country: US (occurrence: US)
  Receive Date: 20190509
  Receipt Date: 20190509
  Transmission Date: 20190711
  Serious: Yes (Other)
  Sender: FDA-Public Use
  Company Number: US-VIFOR (INTERNATIONAL) INC.-VIT-2019-04407

PATIENT
  Age: 59 Year
  Sex: Female
  Weight: 106.5 kg

DRUGS (3)
  1. MIRCERA [Suspect]
     Active Substance: METHOXY POLYETHYLENE GLYCOL-EPOETIN BETA
     Indication: PRODUCT USED FOR UNKNOWN INDICATION
  2. MIRCERA [Suspect]
     Active Substance: METHOXY POLYETHYLENE GLYCOL-EPOETIN BETA
     Dates: start: 20161111
  3. CALCITRIOL. [Concomitant]
     Active Substance: CALCITRIOL

REACTIONS (3)
  - Arrhythmia [Recovered/Resolved]
  - Drug hypersensitivity [Recovered/Resolved]
  - Palpitations [Recovered/Resolved]
